FAERS Safety Report 24897825 (Version 1)
Quarter: 2025Q1

REPORT INFORMATION
  Report Type: Spontaneous
  Country: AU (occurrence: AU)
  Receive Date: 20250129
  Receipt Date: 20250129
  Transmission Date: 20250409
  Serious: Yes (Other)
  Sender: ALKEM
  Company Number: AU-ALKEM LABORATORIES LIMITED-AU-ALKEM-2025-00553

PATIENT
  Age: 53 Year
  Sex: Female

DRUGS (13)
  1. PREGABALIN [Suspect]
     Active Substance: PREGABALIN
     Indication: Product used for unknown indication
     Route: 065
  2. DULOXETINE HYDROCHLORIDE [Suspect]
     Active Substance: DULOXETINE HYDROCHLORIDE
     Indication: Product used for unknown indication
     Route: 065
  3. TOPIRAMATE [Suspect]
     Active Substance: TOPIRAMATE
     Indication: Product used for unknown indication
     Route: 065
  4. METHYLPREDNISOLONE [Suspect]
     Active Substance: METHYLPREDNISOLONE
     Indication: Product used for unknown indication
     Route: 065
  5. LYRICA [Suspect]
     Active Substance: PREGABALIN
     Indication: Product used for unknown indication
     Route: 065
  6. VUMERITY [Suspect]
     Active Substance: DIROXIMEL FUMARATE
     Indication: Product used for unknown indication
     Route: 065
  7. CONJUGATED ESTROGENS [Concomitant]
     Active Substance: ESTROGENS, CONJUGATED
     Indication: Product used for unknown indication
     Route: 065
  8. LITHIUM [Concomitant]
     Active Substance: LITHIUM
     Indication: Product used for unknown indication
     Route: 065
  9. KETAMINE HYDROCHLORIDE [Concomitant]
     Active Substance: KETAMINE HYDROCHLORIDE
     Indication: Product used for unknown indication
     Route: 065
  10. NORTRIPTYLINE HYDROCHLORIDE [Concomitant]
     Active Substance: NORTRIPTYLINE HYDROCHLORIDE
     Indication: Product used for unknown indication
     Route: 065
  11. PALEXIA [Concomitant]
     Active Substance: TAPENTADOL HYDROCHLORIDE
     Indication: Product used for unknown indication
     Route: 065
  12. TEMAZEPAM [Concomitant]
     Active Substance: TEMAZEPAM
     Indication: Product used for unknown indication
     Route: 065
  13. VENLAFAXINE HYDROCHLORIDE [Concomitant]
     Active Substance: VENLAFAXINE HYDROCHLORIDE
     Indication: Product used for unknown indication
     Route: 065

REACTIONS (42)
  - Faecaloma [Unknown]
  - Intestinal obstruction [Unknown]
  - Mental impairment [Unknown]
  - Multiple sclerosis [Unknown]
  - Affective disorder [Unknown]
  - Anal hypoaesthesia [Unknown]
  - Anal incontinence [Unknown]
  - Faeces soft [Unknown]
  - Gastrointestinal disorder [Unknown]
  - Weight decreased [Unknown]
  - Impulsive behaviour [Unknown]
  - Rectal prolapse [Unknown]
  - Neurogenic bowel [Unknown]
  - Muscle atrophy [Unknown]
  - Nervous system disorder [Unknown]
  - Procedural pain [Unknown]
  - Stress [Unknown]
  - Post-traumatic stress disorder [Unknown]
  - Haemorrhoids [Unknown]
  - Pain [Unknown]
  - Urinary tract infection [Unknown]
  - Herpes zoster [Unknown]
  - Abdominal distension [Unknown]
  - Asthenia [Unknown]
  - Chills [Unknown]
  - Constipation [Unknown]
  - Anxiety [Unknown]
  - Diarrhoea [Unknown]
  - Disturbance in attention [Unknown]
  - Dizziness [Unknown]
  - Eye movement disorder [Unknown]
  - Hypotension [Unknown]
  - Insomnia [Unknown]
  - Malaise [Unknown]
  - Muscular weakness [Unknown]
  - Nausea [Unknown]
  - Tinnitus [Unknown]
  - Urinary incontinence [Unknown]
  - Vision blurred [Unknown]
  - Vomiting [Unknown]
  - Overdose [Unknown]
  - Product prescribing error [Unknown]
